FAERS Safety Report 6412472-1 (Version None)
Quarter: 2009Q4

REPORT INFORMATION
  Report Type: 
  Country: None (occurrence: None)
  Receive Date: 20091023
  Receipt Date: 20091015
  Transmission Date: 20100525
  Serious: Yes (Hospitalization, Disabling, Other)
  Sender: FDA-Public Use
  Company Number: US-MERCK-0805USA00401

PATIENT
  Age: 75 Year
  Sex: Female

DRUGS (5)
  1. FOSAMAX [Suspect]
     Indication: OSTEOPOROSIS
     Route: 048
     Dates: start: 20010117, end: 20060401
  2. FOSAMAX [Suspect]
     Route: 048
     Dates: start: 20060401, end: 20061116
  3. FOSAMAX [Suspect]
     Route: 048
     Dates: start: 20080101
  4. HORMONES (UNSPECIFIED) [Concomitant]
     Indication: HORMONE REPLACEMENT THERAPY
     Route: 065
     Dates: start: 19800101
  5. [THERAPY UNSPECIFIED] [Concomitant]
     Indication: HYPERTENSION
     Route: 065
     Dates: start: 19800101

REACTIONS (21)
  - ANKLE FRACTURE [None]
  - BLINDNESS UNILATERAL [None]
  - CATARACT [None]
  - COLONIC POLYP [None]
  - COMPRESSION FRACTURE [None]
  - COUGH [None]
  - DENTAL CARIES [None]
  - DIVERTICULUM [None]
  - GASTROINTESTINAL DISORDER [None]
  - HYPERCHOLESTEROLAEMIA [None]
  - JAW DISORDER [None]
  - KYPHOSIS [None]
  - ORAL DISORDER [None]
  - OSTEOMYELITIS [None]
  - OSTEONECROSIS [None]
  - PRIMARY SEQUESTRUM [None]
  - RESORPTION BONE INCREASED [None]
  - ROAD TRAFFIC ACCIDENT [None]
  - SPINAL OSTEOARTHRITIS [None]
  - TOOTH DISORDER [None]
  - TOOTH LOSS [None]
